FAERS Safety Report 6042789-4 (Version None)
Quarter: 2009Q1

REPORT INFORMATION
  Report Type: 
  Country: None (occurrence: None)
  Receive Date: 20090119
  Receipt Date: 20081219
  Transmission Date: 20090719
  Serious: No
  Sender: FDA-Public Use
  Company Number: US-BAYER-200841512NA

PATIENT
  Age: 52 Year
  Sex: Female

DRUGS (2)
  1. CLIMARA PRO [Suspect]
     Indication: HORMONE REPLACEMENT THERAPY
  2. ATIVAN [Concomitant]
     Indication: ANXIETY

REACTIONS (4)
  - ABNORMAL SENSATION IN EYE [None]
  - ANXIETY [None]
  - HEADACHE [None]
  - PALPITATIONS [None]
